FAERS Safety Report 7483488-1 (Version None)
Quarter: 2011Q2

REPORT INFORMATION
  Report Type: 
  Country: None (occurrence: None)
  Receive Date: 20110509
  Receipt Date: 20110429
  Transmission Date: 20111010
  Serious: No
  Sender: FDA-Public Use
  Company Number: 2011-00248

PATIENT
  Sex: Male
  Weight: 99.7913 kg

DRUGS (2)
  1. MULTI-VITAMINS [Concomitant]
  2. ZICAM COLD REMEDY GEL SWABS [Suspect]

REACTIONS (2)
  - ANOSMIA [None]
  - AGEUSIA [None]
